FAERS Safety Report 6786914-6 (Version None)
Quarter: 2010Q2

REPORT INFORMATION
  Report Type: 
  Country: None (occurrence: None)
  Receive Date: 20100623
  Receipt Date: 20100617
  Transmission Date: 20101027
  Serious: Yes (Hospitalization, Other)
  Sender: FDA-Public Use
  Company Number: US-CVT-100229

PATIENT

DRUGS (10)
  1. RANEXA [Suspect]
     Indication: ANGINA PECTORIS
     Dosage: 500 MG, QID
     Dates: start: 20100209
  2. METOPROLOL                         /00376901/ [Concomitant]
     Dates: start: 20100301
  3. LOTENSIN [Concomitant]
     Dates: start: 20100208
  4. NITROLINGUAL [Concomitant]
  5. FUROSEMIDE                         /00032601/ [Concomitant]
     Dates: start: 20091109
  6. NITROGLYCERIN [Concomitant]
     Dates: start: 20091228
  7. PLAVIX [Concomitant]
     Dates: start: 20100105
  8. ASPER-LOW [Concomitant]
     Dates: start: 20100301
  9. CARAFATE [Concomitant]
     Dates: start: 20100301
  10. PEPCID [Concomitant]
     Dates: start: 20100301

REACTIONS (5)
  - CHEST DISCOMFORT [None]
  - DIZZINESS [None]
  - INAPPROPRIATE SCHEDULE OF DRUG ADMINISTRATION [None]
  - LOSS OF CONSCIOUSNESS [None]
  - TREMOR [None]
